FAERS Safety Report 13528510 (Version 2)
Quarter: 2017Q2

REPORT INFORMATION
  Report Type: Spontaneous
  Country: SE (occurrence: SE)
  Receive Date: 20170509
  Receipt Date: 20170630
  Transmission Date: 20170830
  Serious: Yes (Hospitalization)
  Sender: FDA-Public Use
  Company Number: SE-TEVA-764302ACC

PATIENT
  Age: 97 Year
  Sex: Female

DRUGS (25)
  1. PEVARYL [Concomitant]
     Active Substance: ECONAZOLE NITRATE
  2. FOLACIN [Concomitant]
     Active Substance: FOLIC ACID
  3. ALLOPURINOL NORDIC DRUGS [Concomitant]
     Active Substance: ALLOPURINOL
  4. PULMICORT TURBUHALER [Concomitant]
     Active Substance: BUDESONIDE
  5. OXIKODON DEPOT ACINO [Suspect]
     Active Substance: OXYCODONE HYDROCHLORIDE
     Indication: PAIN
     Route: 048
     Dates: start: 20150629, end: 20150720
  6. DUROFERON [Concomitant]
     Active Substance: FERROUS SULFATE
  7. PREDNISOLON ALTERNOVA [Concomitant]
     Active Substance: PREDNISOLONE
  8. SOBRIL [Concomitant]
     Active Substance: OXAZEPAM
  9. MILDISON LIPID [Concomitant]
  10. IMOVANE [Concomitant]
     Active Substance: ZOPICLONE
  11. RAMIPRIL ACTAVIS [Concomitant]
     Active Substance: RAMIPRIL
  12. AMLODIPINE [Concomitant]
     Active Substance: AMLODIPINE BESYLATE
  13. IMDUR [Concomitant]
     Active Substance: ISOSORBIDE MONONITRATE
  14. FENTANYL ACTAVIS [Suspect]
     Active Substance: FENTANYL
     Indication: PAIN
     Dosage: 125 MICRO G / EVERY 3RD DAY
     Route: 062
     Dates: start: 20150630, end: 20150720
  15. ALVEDON [Concomitant]
     Active Substance: ACETAMINOPHEN
  16. VERSATIS [Concomitant]
     Active Substance: LIDOCAINE
  17. PANTOPRAZOL ACTAVIS [Concomitant]
     Active Substance: PANTOPRAZOLE SODIUM
  18. BETOLVIDON [Concomitant]
     Active Substance: CYANOCOBALAMIN
  19. CITALOPRAM [Concomitant]
     Active Substance: CITALOPRAM HYDROBROMIDE
  20. FLOXACILLIN SODIUM [Concomitant]
     Active Substance: FLUCLOXACILLIN SODIUM ANHYDROUS
  21. OXYNORM [Suspect]
     Active Substance: OXYCODONE HYDROCHLORIDE
     Indication: PAIN
     Route: 048
     Dates: start: 20150629, end: 20150720
  22. SPIRONOLAKTON NYCOMED [Concomitant]
  23. NASONEX [Concomitant]
     Active Substance: MOMETASONE FUROATE
  24. ATROVENT [Concomitant]
     Active Substance: IPRATROPIUM BROMIDE
  25. FURIX [Concomitant]
     Active Substance: FUROSEMIDE

REACTIONS (2)
  - Confusional state [Recovered/Resolved]
  - Toxicity to various agents [Recovered/Resolved]

NARRATIVE: CASE EVENT DATE: 20150717
